FAERS Safety Report 11132183 (Version 2)
Quarter: 2016Q2

REPORT INFORMATION
  Report Type: Report from Study
  Country: US (occurrence: US)
  Receive Date: 20150522
  Receipt Date: 20160516
  Transmission Date: 20160815
  Serious: No
  Sender: FDA-Public Use
  Company Number: US-MALLINCKRODT-T201502312

PATIENT
  Sex: Female
  Weight: 147 kg

DRUGS (5)
  1. POTASSIUM [Concomitant]
     Active Substance: POTASSIUM
  2. DIABETA [Concomitant]
     Active Substance: GLYBURIDE
  3. REPOSITORY CORTICOTROPIN INJECTION [Suspect]
     Active Substance: CORTICOTROPIN
     Indication: PULMONARY SARCOIDOSIS
     Dosage: 40 UNITS TWICE WEEKLY
     Route: 058
     Dates: start: 20150407, end: 201506
  4. ATENOLOL. [Concomitant]
     Active Substance: ATENOLOL
  5. PREDNISONE. [Suspect]
     Active Substance: PREDNISONE
     Indication: PRODUCT USED FOR UNKNOWN INDICATION
     Dosage: UNK
     Route: 065

REACTIONS (9)
  - Fatigue [Unknown]
  - Cough [Unknown]
  - Skin infection [Recovered/Resolved]
  - Constipation [Unknown]
  - Pain [Unknown]
  - Abdominal distension [Unknown]
  - Asthma [Unknown]
  - Musculoskeletal stiffness [Unknown]
  - Increased tendency to bruise [Unknown]
